FAERS Safety Report 18963662 (Version 1)
Quarter: 2021Q1

REPORT INFORMATION
  Report Type: Spontaneous
  Country: CO (occurrence: CO)
  Receive Date: 20210303
  Receipt Date: 20210303
  Transmission Date: 20210420
  Serious: Yes (Other)
  Sender: FDA-Public Use
  Company Number: CO-PFIZER INC-2021175264

PATIENT
  Age: 57 Year
  Sex: Male

DRUGS (2)
  1. PAZOPANIB HYDROCHLORIDE [Concomitant]
     Active Substance: PAZOPANIB HYDROCHLORIDE
     Dosage: UNK
     Dates: start: 202008, end: 202101
  2. SUTENT [Suspect]
     Active Substance: SUNITINIB MALATE
     Indication: RENAL CANCER METASTATIC
     Dosage: 50 MG (UNSPECIFIED FRIEQUENCY)
     Route: 048
     Dates: start: 202004

REACTIONS (17)
  - Immunosuppression [Unknown]
  - Gingival pain [Unknown]
  - Lymphadenopathy [Recovered/Resolved]
  - Oropharyngeal plaque [Recovered/Resolved]
  - Alopecia [Not Recovered/Not Resolved]
  - Pain in jaw [Recovered/Resolved]
  - Lymphadenitis [Unknown]
  - Decreased appetite [Not Recovered/Not Resolved]
  - Underweight [Not Recovered/Not Resolved]
  - Malaise [Unknown]
  - Hair colour changes [Not Recovered/Not Resolved]
  - Weight decreased [Not Recovered/Not Resolved]
  - Diarrhoea [Not Recovered/Not Resolved]
  - Dyspepsia [Unknown]
  - Loose tooth [Recovered/Resolved]
  - Gingival ulceration [Unknown]
  - Madarosis [Not Recovered/Not Resolved]

NARRATIVE: CASE EVENT DATE: 2020
